FAERS Safety Report 26140878 (Version 1)
Quarter: 2025Q4

REPORT INFORMATION
  Report Type: Spontaneous
  Country: US (occurrence: US)
  Receive Date: 20251210
  Receipt Date: 20251210
  Transmission Date: 20260117
  Serious: No
  Sender: MERZ
  Company Number: US-MRZWEB-2025110000172

PATIENT

DRUGS (4)
  1. XEOMIN [Suspect]
     Active Substance: INCOBOTULINUMTOXINA
     Indication: Skin cosmetic procedure
     Dosage: 38 INTERNATIONAL UNIT
     Dates: start: 202510, end: 202510
  2. XEOMIN [Suspect]
     Active Substance: INCOBOTULINUMTOXINA
     Indication: Skin wrinkling
  3. NEUROTOXIN A BOTULINUM [Concomitant]
  4. GLP-1 AGONISTS [Concomitant]

REACTIONS (1)
  - Therapeutic response decreased [Unknown]

NARRATIVE: CASE EVENT DATE: 20250101
